FAERS Safety Report 19404725 (Version 4)
Quarter: 2023Q4

REPORT INFORMATION
  Report Type: Spontaneous
  Country: FR (occurrence: FR)
  Receive Date: 20210611
  Receipt Date: 20231026
  Transmission Date: 20240109
  Serious: Yes (Other)
  Sender: FDA-Public Use
  Company Number: FR-THERAMEX-2021000569

PATIENT
  Age: 48 Year
  Sex: Female

DRUGS (5)
  1. ESTRADIOL [Suspect]
     Active Substance: ESTRADIOL
     Indication: Product used for unknown indication
     Dosage: ONCE A DAY, TWO PRESSURES., ESTREVA GEL 0.1%
     Route: 061
     Dates: start: 20210603
  2. ESTRADIOL [Suspect]
     Active Substance: ESTRADIOL
     Dosage: ONCE A DAY, ONE PRESSURE., ESTREVA GEL 0.1%
     Route: 065
  3. CALCIUM [Suspect]
     Active Substance: CALCIUM
     Indication: Product used for unknown indication
     Route: 065
  4. Estima [Concomitant]
     Indication: Product used for unknown indication
     Dosage: ESTIMA 200MG-PROGESTERONE
     Route: 065
  5. DOXYLAMINE [Concomitant]
     Active Substance: DOXYLAMINE
     Indication: Product used for unknown indication
     Route: 065

REACTIONS (6)
  - Syncope [Recovered/Resolved]
  - Gait inability [Recovered/Resolved]
  - Aphasia [Recovered/Resolved]
  - Eye disorder [Recovered/Resolved]
  - Feeling cold [Unknown]
  - Fatigue [Unknown]

NARRATIVE: CASE EVENT DATE: 20210603
